FAERS Safety Report 6235410-3 (Version None)
Quarter: 2009Q2

REPORT INFORMATION
  Report Type: 
  Country: None (occurrence: None)
  Receive Date: 20090618
  Receipt Date: 20090410
  Transmission Date: 20091009
  Serious: No
  Sender: FDA-Public Use
  Company Number: US-ASTRAZENECA-2009UW09146

PATIENT
  Sex: Male
  Weight: 99.8 kg

DRUGS (7)
  1. ENTOCORT EC [Suspect]
     Indication: COLITIS
     Route: 048
     Dates: start: 20090409
  2. HUMALOG [Concomitant]
     Indication: DIABETES MELLITUS
  3. LANTUS [Concomitant]
     Indication: DIABETES MELLITUS
  4. SIMVASTATIN [Concomitant]
     Indication: BLOOD CHOLESTEROL
  5. ENALAPRIL [Concomitant]
  6. FLOMAX [Concomitant]
  7. IMODIUM [Concomitant]

REACTIONS (1)
  - BLOOD GLUCOSE INCREASED [None]
